FAERS Safety Report 15277686 (Version 2)
Quarter: 2019Q3

REPORT INFORMATION
  Report Type: Report from Study
  Country: US (occurrence: US)
  Receive Date: 20180814
  Receipt Date: 20190701
  Transmission Date: 20191004
  Serious: Yes (Other)
  Sender: FDA-Public Use
  Company Number: US-ASTELLAS-2014US009523

PATIENT
  Age: 66 Year
  Sex: Female
  Weight: 64.47 kg

DRUGS (8)
  1. ERLOTINIB [Suspect]
     Active Substance: ERLOTINIB
     Route: 048
  2. LIPITOR [Concomitant]
     Active Substance: ATORVASTATIN CALCIUM
     Indication: BLOOD CHOLESTEROL
     Route: 048
  3. FISH OIL [Concomitant]
     Active Substance: FISH OIL
     Indication: PROPHYLAXIS
     Route: 048
  4. ERLOTINIB [Suspect]
     Active Substance: ERLOTINIB
     Indication: BRONCHIAL CARCINOMA
     Route: 048
     Dates: start: 20140109, end: 20140409
  5. ERLOTINIB [Suspect]
     Active Substance: ERLOTINIB
     Route: 048
     Dates: start: 20140410, end: 2015
  6. ASPIRIN. [Concomitant]
     Active Substance: ASPIRIN
     Indication: PROPHYLAXIS
     Dosage: UNK, ONCE DAILY
     Route: 048
  7. ERLOTINIB [Suspect]
     Active Substance: ERLOTINIB
     Route: 048
     Dates: start: 20160116
  8. ASA [Concomitant]
     Active Substance: ASPIRIN
     Indication: PROPHYLAXIS
     Dosage: UNK, UNKNOWN FREQ.
     Route: 048

REACTIONS (23)
  - Onycholysis [Unknown]
  - Cataract [Recovered/Resolved]
  - Alopecia [Unknown]
  - Diarrhoea [Not Recovered/Not Resolved]
  - Dyspepsia [Not Recovered/Not Resolved]
  - Muscle spasms [Not Recovered/Not Resolved]
  - Anxiety [Not Recovered/Not Resolved]
  - Weight decreased [Unknown]
  - Bronchitis [Recovered/Resolved]
  - Hypertension [Not Recovered/Not Resolved]
  - Dermatitis acneiform [Unknown]
  - Nausea [Not Recovered/Not Resolved]
  - Confusional state [Unknown]
  - Rash [Recovered/Resolved]
  - Haemorrhoidal haemorrhage [Recovering/Resolving]
  - Memory impairment [Not Recovered/Not Resolved]
  - Anxiety [Unknown]
  - Diarrhoea [Unknown]
  - Cough [Unknown]
  - Rash [Not Recovered/Not Resolved]
  - Pain of skin [Unknown]
  - Haemorrhage [Unknown]
  - Lichen planus [Unknown]

NARRATIVE: CASE EVENT DATE: 20140111
